FAERS Safety Report 4303348-4 (Version None)
Quarter: 2004Q1

REPORT INFORMATION
  Report Type: 
  Country: None (occurrence: None)
  Receive Date: 20040223
  Receipt Date: 20040212
  Transmission Date: 20041129
  Serious: Yes (Other)
  Sender: FDA-Public Use
  Company Number: GB-JNJFOC-20040203134

PATIENT
  Age: 39 Year
  Sex: Male

DRUGS (1)
  1. RISPERDAL [Suspect]
     Indication: DRUG USE FOR UNKNOWN INDICATION
     Dosage: 4 MG

REACTIONS (2)
  - HEPATIC ENZYME INCREASED [None]
  - THROMBOCYTOPENIA [None]
